FAERS Safety Report 4571478-8 (Version None)
Quarter: 2005Q1

REPORT INFORMATION
  Report Type: 
  Country: None (occurrence: None)
  Receive Date: 20050207
  Receipt Date: 20040219
  Transmission Date: 20050727
  Serious: Yes (Life-Threatening, Hospitalization, Disabling)
  Sender: FDA-Public Use
  Company Number: US-MERCK-0402USA01450

PATIENT
  Age: 37 Year
  Sex: Female
  Weight: 76 kg

DRUGS (13)
  1. VIOXX [Suspect]
     Indication: ARTHRITIS
     Route: 048
     Dates: start: 20010301, end: 20021001
  2. VIOXX [Suspect]
     Indication: OSTEOARTHRITIS
     Route: 048
     Dates: start: 20010301, end: 20021001
  3. ATIVAN [Concomitant]
     Route: 065
     Dates: start: 20000101, end: 20010101
  4. HYDROCHLOROTHIAZIDE [Concomitant]
     Route: 065
  5. HYDROCODONE HYDROCHLORIDE [Concomitant]
     Route: 065
     Dates: start: 20010301
  6. MAXZIDE [Concomitant]
     Route: 065
     Dates: end: 20021031
  7. NEURONTIN [Concomitant]
     Route: 065
     Dates: start: 20000101
  8. REMERON [Concomitant]
     Route: 065
     Dates: start: 20000101
  9. TRAZODONE HYDROCHLORIDE [Concomitant]
     Route: 065
     Dates: start: 20000101
  10. TRICOR [Concomitant]
     Route: 065
  11. ZANAFLEX [Concomitant]
     Route: 065
  12. MIDRIN [Concomitant]
     Route: 065
     Dates: start: 20010301
  13. LIDODERM [Concomitant]
     Route: 065

REACTIONS (18)
  - ABDOMINAL PAIN [None]
  - ANXIETY [None]
  - BIPOLAR DISORDER [None]
  - BLOOD CHOLESTEROL INCREASED [None]
  - BLOOD TRIGLYCERIDES INCREASED [None]
  - CERVICOBRACHIAL SYNDROME [None]
  - DIARRHOEA [None]
  - EMOTIONAL DISTRESS [None]
  - FATIGUE [None]
  - INTERVERTEBRAL DISC DEGENERATION [None]
  - MENSTRUAL DISORDER [None]
  - MYOFASCIAL PAIN SYNDROME [None]
  - NERVE INJURY [None]
  - OEDEMA PERIPHERAL [None]
  - PELVIC PAIN [None]
  - RENAL FAILURE [None]
  - RENAL FAILURE ACUTE [None]
  - TIBIA FRACTURE [None]
